FAERS Safety Report 9113112 (Version 1)
Quarter: 2013Q1

REPORT INFORMATION
  Report Type: Spontaneous
  Country: US (occurrence: US)
  Receive Date: 20130211
  Receipt Date: 20130211
  Transmission Date: 20140127
  Serious: Yes (Other)
  Sender: FDA-Public Use
  Company Number: US-TEVA-385468USA

PATIENT
  Sex: Female

DRUGS (1)
  1. TRAZODONE [Suspect]

REACTIONS (2)
  - Choking [Unknown]
  - Oesophageal pain [Unknown]
